FAERS Safety Report 15464169 (Version 1)
Quarter: 2018Q4

REPORT INFORMATION
  Report Type: Spontaneous
  Country: TR (occurrence: TR)
  Receive Date: 20181004
  Receipt Date: 20181004
  Transmission Date: 20190204
  Serious: Yes (Hospitalization)
  Sender: FDA-Public Use
  Company Number: TR-TEVA-2018-TR-961443

PATIENT
  Age: 30 Year
  Sex: Female

DRUGS (1)
  1. FLUCONAZOLE. [Suspect]
     Active Substance: FLUCONAZOLE
     Indication: VULVOVAGINAL CANDIDIASIS
     Route: 065

REACTIONS (3)
  - Fixed eruption [Recovered/Resolved]
  - Stevens-Johnson syndrome [Recovered/Resolved]
  - Anaphylactic reaction [Recovered/Resolved]
